FAERS Safety Report 6890918-2 (Version None)
Quarter: 2010Q3

REPORT INFORMATION
  Report Type: 
  Country: None (occurrence: None)
  Receive Date: 20100731
  Receipt Date: 20090414
  Transmission Date: 20110219
  Serious: No
  Sender: FDA-Public Use
  Company Number: US-PFIZER INC-2009198747

PATIENT
  Sex: Female
  Weight: 54.875 kg

DRUGS (4)
  1. LIPITOR [Suspect]
     Indication: BLOOD CHOLESTEROL INCREASED
     Dosage: UNK
     Route: 048
     Dates: start: 20060101, end: 20080901
  2. LIPITOR [Suspect]
     Indication: BLOOD TRIGLYCERIDES INCREASED
  3. TRICOR [Suspect]
     Indication: BLOOD CHOLESTEROL INCREASED
     Dosage: UNK,
     Route: 048
     Dates: start: 20050101, end: 20080901
  4. TRICOR [Suspect]
     Indication: BLOOD TRIGLYCERIDES INCREASED

REACTIONS (2)
  - DRUG INEFFECTIVE [None]
  - DRUG LEVEL FLUCTUATING [None]
